FAERS Safety Report 5332878-1 (Version None)
Quarter: 2007Q2

REPORT INFORMATION
  Report Type: 
  Country: None (occurrence: None)
  Receive Date: 20070521
  Receipt Date: 20070502
  Transmission Date: 20071010
  Serious: Yes (Hospitalization)
  Sender: FDA-Public Use
  Company Number: DAV-AE-ACY-07-008

PATIENT
  Age: 27 Year
  Sex: Male

DRUGS (2)
  1. ACYCLOVIR [Suspect]
     Indication: HERPES ZOSTER
     Dosage: 10MG/KG IV Q 8H
     Route: 042
  2. CEFTRIAXONE [Suspect]
     Indication: HERPES ZOSTER
     Dosage: 2 G IV Q 12H
     Route: 042

REACTIONS (7)
  - BLOOD URINE PRESENT [None]
  - ENCEPHALITIS [None]
  - EPSTEIN-BARR VIRUS ANTIBODY POSITIVE [None]
  - FALSE POSITIVE LABORATORY RESULT [None]
  - HERPES ZOSTER [None]
  - RENAL FAILURE ACUTE [None]
  - RHABDOMYOLYSIS [None]
